FAERS Safety Report 8027289-4 (Version None)
Quarter: 2012Q1

REPORT INFORMATION
  Report Type: 
  Country: None (occurrence: None)
  Receive Date: 20120105
  Receipt Date: 20120105
  Transmission Date: 20120608
  Serious: Yes (Hospitalization)
  Sender: FDA-Public Use
  Company Number: None

PATIENT
  Age: 45 Year
  Sex: Female
  Weight: 80.4681 kg

DRUGS (2)
  1. OXALIPLATIN [Suspect]
     Indication: ADENOCARCINOMA
     Dosage: 65MG EVERY 2 WKS
     Dates: start: 20111027
  2. GEMCITABINE [Suspect]
     Indication: ADENOCARCINOMA
     Dosage: 640MG EVERY 2 WKS
     Dates: start: 20111027

REACTIONS (6)
  - TROPONIN INCREASED [None]
  - CHEST PAIN [None]
  - NAUSEA [None]
  - HYPERHIDROSIS [None]
  - DYSPNOEA [None]
  - FATIGUE [None]
